FAERS Safety Report 8275142-3 (Version None)
Quarter: 2012Q2

REPORT INFORMATION
  Report Type: 
  Country: None (occurrence: None)
  Receive Date: 20120411
  Receipt Date: 20120403
  Transmission Date: 20120825
  Serious: Yes (Congenital Anomaly, Other)
  Sender: FDA-Public Use
  Company Number: PHHY2012GB028618

PATIENT

DRUGS (1)
  1. CITALOPRAM HYDROBROMIDE [Suspect]
     Dosage: UNK
     Route: 064
     Dates: start: 20101201

REACTIONS (3)
  - FALLOT'S TETRALOGY [None]
  - FOETAL EXPOSURE DURING PREGNANCY [None]
  - OEDEMA PERIPHERAL [None]
